FAERS Safety Report 6207869-9 (Version None)
Quarter: 2009Q2

REPORT INFORMATION
  Report Type: 
  Country: None (occurrence: None)
  Receive Date: 20090527
  Receipt Date: 20090513
  Transmission Date: 20091009
  Serious: Yes (Hospitalization)
  Sender: FDA-Public Use
  Company Number: 2009S1008630

PATIENT
  Age: 56 Year
  Sex: Male
  Weight: 109.7705 kg

DRUGS (10)
  1. FENTANYL TRANSDERMAL SYSTEM [Suspect]
     Indication: BACK PAIN
     Dosage: 100 UG/EVERY HOUR; TRANSDERMAL
     Route: 062
     Dates: start: 20050101
  2. FENTANYL TRANSDERMAL SYSTEM [Suspect]
     Indication: BACK PAIN
     Dosage: 50 UG;EVERY HOURS; TRANSDERMAL
     Route: 062
     Dates: start: 20050101
  3. PRILOSEC (CON.) [Concomitant]
  4. VENLAFAXINE (CON.) [Concomitant]
  5. LORCET 10/650 (CON.) [Concomitant]
  6. PLENDIL (CON.0 [Concomitant]
  7. ASA (CON.) [Concomitant]
  8. METFORMIN (CON.) [Concomitant]
  9. GLIPIZIDE (CON.) [Concomitant]
  10. ATENOLOL (CON.) [Concomitant]

REACTIONS (6)
  - DYSPNOEA [None]
  - OBSTRUCTIVE AIRWAYS DISORDER [None]
  - OEDEMA [None]
  - PRODUCT SUBSTITUTION ISSUE [None]
  - SLEEP APNOEA SYNDROME [None]
  - WEIGHT INCREASED [None]
